FAERS Safety Report 20516902 (Version 2)
Quarter: 2022Q2

REPORT INFORMATION
  Report Type: Report from Study
  Country: US (occurrence: US)
  Receive Date: 20220225
  Receipt Date: 20220513
  Transmission Date: 20220721
  Serious: Yes (Hospitalization, Other)
  Sender: FDA-Public Use
  Company Number: US-TAKEDA-2022TUS011133

PATIENT
  Age: 82 Year
  Sex: Male
  Weight: 59 kg

DRUGS (2)
  1. VEDOLIZUMAB [Suspect]
     Active Substance: VEDOLIZUMAB
     Indication: Colitis ulcerative
     Dosage: 300 MILLIGRAM
     Route: 065
  2. VEDOLIZUMAB [Suspect]
     Active Substance: VEDOLIZUMAB
     Indication: Product used for unknown indication

REACTIONS (10)
  - Chronic kidney disease [Unknown]
  - Femur fracture [Unknown]
  - Lower limb fracture [Unknown]
  - Visual impairment [Unknown]
  - Fall [Unknown]
  - Urinary tract infection [Unknown]
  - General physical health deterioration [Unknown]
  - Weight decreased [Unknown]
  - Gait inability [Unknown]
  - Poor venous access [Unknown]

NARRATIVE: CASE EVENT DATE: 20211001
